FAERS Safety Report 5533563-3 (Version None)
Quarter: 2007Q4

REPORT INFORMATION
  Report Type: 
  Country: None (occurrence: None)
  Receive Date: 20071204
  Receipt Date: 20071124
  Transmission Date: 20080405
  Serious: Yes (Other)
  Sender: FDA-Public Use
  Company Number: US-PFIZER INC-2006132645

PATIENT
  Sex: Female
  Weight: 74.8 kg

DRUGS (9)
  1. CHANTIX [Interacting]
     Indication: SMOKING CESSATION THERAPY
  2. PERCOCET [Suspect]
  3. CYCLOBENZAPRINE HCL [Suspect]
  4. ATIVAN [Interacting]
  5. ABILIFY [Interacting]
  6. DRUG, UNSPECIFIED [Interacting]
  7. CYMBALTA [Interacting]
  8. TRAZODONE HCL [Concomitant]
     Indication: INSOMNIA
  9. TRAMADOL HCL [Concomitant]

REACTIONS (42)
  - ABNORMAL DREAMS [None]
  - ACTIVITIES OF DAILY LIVING IMPAIRED [None]
  - ANXIETY [None]
  - BINGE EATING [None]
  - CATARACT OPERATION [None]
  - CHEST DISCOMFORT [None]
  - CHROMATURIA [None]
  - CONSTIPATION [None]
  - COUGH [None]
  - DECREASED APPETITE [None]
  - DEPRESSION [None]
  - DISORIENTATION [None]
  - DISSOCIATION [None]
  - DISTURBANCE IN ATTENTION [None]
  - DIZZINESS [None]
  - DRUG DOSE OMISSION [None]
  - DRUG INTERACTION [None]
  - DRUG INTOLERANCE [None]
  - FATIGUE [None]
  - FEELING ABNORMAL [None]
  - FLATULENCE [None]
  - HALLUCINATION [None]
  - HEADACHE [None]
  - HYPERPHAGIA [None]
  - INSOMNIA [None]
  - IRRITABILITY [None]
  - LUNG DISORDER [None]
  - MALAISE [None]
  - MEMORY IMPAIRMENT [None]
  - MENTAL IMPAIRMENT [None]
  - NAUSEA [None]
  - NIGHTMARE [None]
  - ORAL PAIN [None]
  - PARANOIA [None]
  - PHARYNGOLARYNGEAL PAIN [None]
  - PSYCHIATRIC SYMPTOM [None]
  - SCHIZOPHRENIA [None]
  - SLEEP DISORDER [None]
  - SOMATISATION DISORDER [None]
  - STRESS [None]
  - WEIGHT DECREASED [None]
  - WEIGHT INCREASED [None]
